FAERS Safety Report 12328412 (Version 1)
Quarter: 2016Q2

REPORT INFORMATION
  Report Type: Spontaneous
  Country: US (occurrence: US)
  Receive Date: 20160503
  Receipt Date: 20160503
  Transmission Date: 20160815
  Serious: No
  Sender: FDA-Public Use
  Company Number: US-BEH-2014042103

PATIENT
  Sex: Male
  Weight: 77 kg

DRUGS (21)
  1. EPIPEN [Concomitant]
     Active Substance: EPINEPHRINE
  2. ASPIR EC [Concomitant]
     Route: 048
  3. DEXAMETHASONE. [Concomitant]
     Active Substance: DEXAMETHASONE
     Route: 048
  4. CLOTRIMAZOLE BETAMETHASONE [Concomitant]
  5. CEPHALEXIN. [Concomitant]
     Active Substance: CEPHALEXIN
     Route: 048
  6. HIZENTRA [Suspect]
     Active Substance: HUMAN IMMUNOGLOBULIN G
     Indication: NEOPLASM
     Dosage: 2 GM
     Route: 058
  7. ALL OTHER THERAPEUTIC PRODUCTS [Concomitant]
     Active Substance: UNSPECIFIED INGREDIENT
  8. DIPHENHYDRAMINE. [Concomitant]
     Active Substance: DIPHENHYDRAMINE
  9. IMIQUIMOD. [Concomitant]
     Active Substance: IMIQUIMOD
     Dosage: 5%
  10. PROTONIX [Concomitant]
     Active Substance: PANTOPRAZOLE SODIUM
     Route: 048
  11. KEFLEX [Concomitant]
     Active Substance: CEPHALEXIN
  12. LMX [Concomitant]
     Active Substance: LIDOCAINE
  13. DIOVAN [Concomitant]
     Active Substance: VALSARTAN
     Route: 048
  14. KLOR-CON [Concomitant]
     Active Substance: POTASSIUM CHLORIDE
     Route: 048
  15. VITAMIN B COMPLEX [Concomitant]
     Active Substance: CYANOCOBALAMIN\DEXPANTHENOL\NIACINAMIDE\PYRIDOXINE HYDROCHLORIDE\RIBOFLAVIN 5^-PHOSPHATE SODIUM\THIAMINE HYDROCHLORIDE\VITAMIN B COMPLEX
     Route: 048
  16. HIZENTRA [Suspect]
     Active Substance: HUMAN IMMUNOGLOBULIN G
     Indication: NEOPLASM
     Dosage: 2 GM
     Route: 058
  17. NEUPOGEN [Concomitant]
     Active Substance: FILGRASTIM
     Dosage: 300 MCG/0.5 ML SYR
  18. DOXAZOSIN [Concomitant]
     Active Substance: DOXAZOSIN\DOXAZOSIN MESYLATE
     Route: 048
  19. AVODART [Concomitant]
     Active Substance: DUTASTERIDE
     Dosage: SOFTGEL
     Route: 048
  20. SENOKOT [Concomitant]
     Active Substance: SENNOSIDES
     Route: 048
  21. FOLIC ACID. [Concomitant]
     Active Substance: FOLIC ACID
     Route: 048

REACTIONS (1)
  - Infusion site swelling [Unknown]
